FAERS Safety Report 8344593 (Version 4)
Quarter: 2013Q3

REPORT INFORMATION
  Report Type: Spontaneous
  Country: AR (occurrence: AR)
  Receive Date: 20120120
  Receipt Date: 20130927
  Transmission Date: 20140515
  Serious: Yes (Hospitalization)
  Sender: FDA-Public Use
  Company Number: AR-AMGEN-ARGSP2012002769

PATIENT
  Age: 49 Year
  Sex: Male

DRUGS (3)
  1. ENBREL [Suspect]
     Indication: PSORIATIC ARTHROPATHY
     Dosage: 25 MG, 2X/WEEK
     Route: 058
     Dates: start: 20100101, end: 201112
  2. METHOTREXATE [Concomitant]
     Dosage: UNK
     Route: 048
  3. OMEPRAZOLE [Concomitant]
     Dosage: UNK
     Route: 048

REACTIONS (10)
  - Cardiac disorder [Unknown]
  - Blood pressure abnormal [Unknown]
  - Endocrine disorder [Unknown]
  - Weight increased [Recovered/Resolved]
  - Gastric disorder [Recovered/Resolved]
  - Stress [Recovered/Resolved]
  - Lung disorder [Recovered/Resolved]
  - Nervous system disorder [Recovered/Resolved]
  - Gait disturbance [Recovered/Resolved]
  - Psoriasis [Recovered/Resolved]
